FAERS Safety Report 19117675 (Version 1)
Quarter: 2021Q2

REPORT INFORMATION
  Report Type: Spontaneous
  Country: GB (occurrence: GB)
  Receive Date: 20210409
  Receipt Date: 20210409
  Transmission Date: 20210717
  Serious: Yes (Other)
  Sender: FDA-Public Use
  Company Number: GB-TEVA-2021-GB-1899240

PATIENT
  Age: 63 Year
  Sex: Male
  Weight: 85 kg

DRUGS (8)
  1. COLCHICIN [Concomitant]
     Active Substance: COLCHICINE
  2. NAPROXENE [Concomitant]
     Active Substance: NAPROXEN
  3. BECOTIDE [Concomitant]
     Active Substance: BECLOMETHASONE DIPROPIONATE
  4. BISACODYL. [Concomitant]
     Active Substance: BISACODYL
  5. LACTULOSE LIQUID [Concomitant]
  6. FEBUXOSTAT. [Concomitant]
     Active Substance: FEBUXOSTAT
  7. LANSOPRAZOLE. [Suspect]
     Active Substance: LANSOPRAZOLE
     Indication: GASTROOESOPHAGEAL REFLUX DISEASE
     Dosage: 15 MILLIGRAM DAILY;
     Route: 048
     Dates: start: 199103
  8. VENTOLIN [Concomitant]
     Active Substance: ALBUTEROL SULFATE

REACTIONS (2)
  - Gynaecomastia [Not Recovered/Not Resolved]
  - Breast mass [Unknown]

NARRATIVE: CASE EVENT DATE: 20210315
